FAERS Safety Report 5498774-4 (Version None)
Quarter: 2007Q4

REPORT INFORMATION
  Report Type: 
  Country: None (occurrence: None)
  Receive Date: 20071026
  Receipt Date: 20071016
  Transmission Date: 20080405
  Serious: No
  Sender: FDA-Public Use
  Company Number: A0664341A

PATIENT
  Age: 60 Year
  Sex: Female

DRUGS (6)
  1. ADVAIR DISKUS 100/50 [Suspect]
     Indication: ASTHMA
     Dosage: 1PUFF TWICE PER DAY
     Route: 055
     Dates: start: 20010101
  2. BLOOD PRESSURE MEDICATION [Concomitant]
  3. FLOVENT [Concomitant]
  4. UNKNOWN MEDICATION [Concomitant]
  5. PRILOSEC [Concomitant]
  6. DIOVAN [Concomitant]

REACTIONS (6)
  - BONE DENSITY DECREASED [None]
  - DENTAL CARIES [None]
  - TOOTH DISORDER [None]
  - TOOTH EROSION [None]
  - TOOTH FRACTURE [None]
  - TOOTH INJURY [None]
